FAERS Safety Report 8846588 (Version 3)
Quarter: 2012Q4

REPORT INFORMATION
  Report Type: 
  Country: IL (occurrence: IL)
  Receive Date: 20121017
  Receipt Date: 20121106
  Transmission Date: 20130627
  Serious: Yes (Hospitalization)
  Sender: FDA-Public Use
  Company Number: IL-B.I. PHARMACEUTICALS,INC./RIDGEFIELD-2012-AP-00852RI

PATIENT
  Age: 74 Year
  Sex: Female
  Weight: 80 kg

DRUGS (12)
  1. PRADAXA [Suspect]
     Indication: ATRIAL FIBRILLATION
     Route: 048
  2. PRADAXA [Suspect]
     Indication: CEREBROVASCULAR ACCIDENT PROPHYLAXIS
  3. ATACAND [Concomitant]
     Dosage: 8 mg
     Route: 048
  4. EZETROL [Concomitant]
     Dosage: 10 mg
     Route: 048
  5. FUSID [Concomitant]
     Dosage: 40 mg
     Route: 048
  6. INSULIN LEVEMIR [Concomitant]
     Dosage: 25 U
     Route: 058
  7. INSULIN NOVORAPID [Concomitant]
     Dosage: 4 U
     Route: 058
  8. LIPITOR [Concomitant]
     Dosage: 40 mg
     Route: 048
  9. METFORMIN [Concomitant]
     Dosage: 2550 mg
     Route: 048
  10. MICROPIRIN [Concomitant]
     Dosage: 75 mg
     Route: 048
  11. MONONIT RETARD [Concomitant]
     Dosage: 50 mg
     Route: 048
  12. ARIMIDEX [Concomitant]
     Indication: BREAST CANCER

REACTIONS (9)
  - Pericardial effusion [Not Recovered/Not Resolved]
  - Confusional state [Not Recovered/Not Resolved]
  - Renal failure [Not Recovered/Not Resolved]
  - Asthenia [Unknown]
  - Dyspnoea [Unknown]
  - Dizziness [Unknown]
  - Mediastinal mass [Unknown]
  - Scoliosis [Unknown]
  - Leiomyoma [Unknown]
